FAERS Safety Report 6538245-7 (Version None)
Quarter: 2010Q1

REPORT INFORMATION
  Report Type: 
  Country: None (occurrence: None)
  Receive Date: 20100112
  Receipt Date: 20100112
  Transmission Date: 20100710
  Serious: Yes (Other)
  Sender: FDA-Public Use
  Company Number: None

PATIENT
  Age: 53 Year
  Sex: Male
  Weight: 127.0072 kg

DRUGS (1)
  1. PRISTIQ [Suspect]
     Indication: DEPRESSION
     Dosage: 50MG ONCE PO
     Route: 048
     Dates: start: 20091201, end: 20091227

REACTIONS (3)
  - AGITATION [None]
  - HOSTILITY [None]
  - INSOMNIA [None]
